FAERS Safety Report 8157272-X (Version None)
Quarter: 2012Q1

REPORT INFORMATION
  Report Type: 
  Country: None (occurrence: None)
  Receive Date: 20120222
  Receipt Date: 20120217
  Transmission Date: 20120608
  Serious: Yes (Other)
  Sender: FDA-Public Use
  Company Number: DE-AMGEN-DEUSP2012005019

PATIENT
  Age: 45 Year
  Sex: Male

DRUGS (5)
  1. OPIPRAMOL [Concomitant]
     Indication: ANTIDEPRESSANT THERAPY
     Dosage: 50 MG, QD
     Route: 048
  2. OMEPRAZOLE [Concomitant]
     Indication: GASTROOESOPHAGEAL REFLUX DISEASE
     Dosage: 40 MG, UNK
     Route: 048
  3. LEVOTHYROXINE SODIUM [Concomitant]
     Indication: HYPERTHYROIDISM
     Dosage: 100 MG, QD
     Route: 048
  4. TESTOSTERONE [Concomitant]
     Indication: KLINEFELTER'S SYNDROME
     Dosage: UNK UNK, QMO
     Route: 058
     Dates: end: 20120101
  5. NPLATE [Suspect]
     Indication: IDIOPATHIC THROMBOCYTOPENIC PURPURA
     Dosage: 2 MUG/KG, UNK
     Route: 058
     Dates: start: 20080915, end: 20120208

REACTIONS (2)
  - OSTEONECROSIS [None]
  - ARTHRALGIA [None]
